FAERS Safety Report 4798392-7 (Version None)
Quarter: 2005Q4

REPORT INFORMATION
  Report Type: 
  Country: None (occurrence: None)
  Receive Date: 20051014
  Receipt Date: 20051004
  Transmission Date: 20060501
  Serious: Yes (Other)
  Sender: FDA-Public Use
  Company Number: US-GLAXOSMITHKLINE-A0577032A

PATIENT
  Age: 24 Year
  Sex: Female
  Weight: 53.6 kg

DRUGS (5)
  1. CUTIVATE [Suspect]
     Indication: THERAPEUTIC PROCEDURE
     Route: 061
     Dates: start: 20050601, end: 20050731
  2. CUTIVATE [Suspect]
     Indication: THERAPEUTIC PROCEDURE
     Route: 061
     Dates: start: 20050524, end: 20050601
  3. BACTRIM [Concomitant]
  4. SPIRONOLACTONE [Concomitant]
  5. CONCERTA [Concomitant]

REACTIONS (5)
  - CONTUSION [None]
  - DERMATITIS ACNEIFORM [None]
  - ERYTHEMA [None]
  - HAEMORRHAGE [None]
  - SKIN ATROPHY [None]
